FAERS Safety Report 6423608-0 (Version None)
Quarter: 2009Q4

REPORT INFORMATION
  Report Type: 
  Country: None (occurrence: None)
  Receive Date: 20091028
  Receipt Date: 20091020
  Transmission Date: 20100525
  Serious: Yes (Hospitalization)
  Sender: FDA-Public Use
  Company Number: DSA_41875_2009

PATIENT
  Age: 9 Year
  Sex: Male

DRUGS (2)
  1. XENAZINE [Suspect]
     Indication: DRUG USE FOR UNKNOWN INDICATION
     Dosage: (DF)
  2. NOZINAM /00038601/ [Concomitant]

REACTIONS (5)
  - ATTENTION DEFICIT/HYPERACTIVITY DISORDER [None]
  - HYPERTENSION [None]
  - IMPULSIVE BEHAVIOUR [None]
  - TIC [None]
  - TOURETTE'S DISORDER [None]
